FAERS Safety Report 5843167-0 (Version None)
Quarter: 2008Q3

REPORT INFORMATION
  Report Type: 
  Country: None (occurrence: None)
  Receive Date: 20080812
  Receipt Date: 20080812
  Transmission Date: 20090109
  Serious: Yes (Life-Threatening)
  Sender: FDA-Public Use
  Company Number: None

PATIENT
  Age: 44 Year
  Sex: Female
  Weight: 101 kg

DRUGS (5)
  1. EFFEXOR XR [Suspect]
     Indication: DEPRESSION
     Dosage: 300 MG EVERY DAY PO
     Route: 048
     Dates: start: 20080731, end: 20080808
  2. LEVOTHYROXINE SODIUM [Concomitant]
  3. ONDANSETRON [Concomitant]
  4. POTASSIUM CHLORIDE [Concomitant]
  5. MAGNESIUM SULFATE [Concomitant]

REACTIONS (2)
  - UNRESPONSIVE TO STIMULI [None]
  - VENTRICULAR FIBRILLATION [None]
